FAERS Safety Report 6862144-4 (Version None)
Quarter: 2010Q3

REPORT INFORMATION
  Report Type: 
  Country: None (occurrence: None)
  Receive Date: 20100721
  Receipt Date: 20100709
  Transmission Date: 20110219
  Serious: Yes (Life-Threatening)
  Sender: FDA-Public Use
  Company Number: NL-JNJFOC-20100703461

PATIENT
  Sex: Female
  Weight: 70 kg

DRUGS (7)
  1. INFLIXIMAB, RECOMBINANT [Suspect]
     Indication: RHEUMATOID ARTHRITIS
     Route: 042
  2. INFLIXIMAB, RECOMBINANT [Suspect]
     Route: 042
  3. METHOTREXATE [Concomitant]
     Indication: RHEUMATOID ARTHRITIS
  4. FOLIC ACID [Concomitant]
  5. OMEPRAZOLE [Concomitant]
     Indication: GASTRIC DISORDER
  6. SIFROL [Concomitant]
     Indication: PARKINSON'S DISEASE
  7. HYDROCHLOROTHIAZIDE [Concomitant]
     Indication: CARDIOVASCULAR DISORDER

REACTIONS (1)
  - BASAL CELL CARCINOMA [None]
